FAERS Safety Report 12272764 (Version 4)
Quarter: 2017Q3

REPORT INFORMATION
  Report Type: Spontaneous
  Country: US (occurrence: US)
  Receive Date: 20160415
  Receipt Date: 20170717
  Transmission Date: 20171127
  Serious: Yes (Hospitalization)
  Sender: FDA-Public Use
  Company Number: US-PFIZER INC-2016190671

PATIENT
  Age: 35 Year
  Sex: Female

DRUGS (2)
  1. IBRANCE [Suspect]
     Active Substance: PALBOCICLIB
     Dosage: 125 MG, CYCLIC
     Dates: start: 20150713
  2. IBRANCE [Suspect]
     Active Substance: PALBOCICLIB
     Indication: BREAST CANCER METASTATIC
     Dosage: 125 MG, CYCLIC
     Dates: start: 201505

REACTIONS (6)
  - Blood count abnormal [Unknown]
  - Food poisoning [Unknown]
  - Hangnail [Unknown]
  - Fatigue [Recovering/Resolving]
  - Infection [Unknown]
  - Weight increased [Unknown]
